FAERS Safety Report 9127087 (Version 1)
Quarter: 2013Q1

REPORT INFORMATION
  Report Type: Spontaneous
  Country: BR (occurrence: BR)
  Receive Date: 20130228
  Receipt Date: 20130228
  Transmission Date: 20140127
  Serious: Yes (Other)
  Sender: FDA-Public Use
  Company Number: PHHY2012BR070283

PATIENT
  Sex: Female

DRUGS (3)
  1. FORASEQ [Suspect]
     Indication: ASTHMA
     Dosage: 1 DF, BID
  2. BRONDILAT [Concomitant]
     Dosage: UNK UKN, UNK
  3. TAMIRAM [Concomitant]
     Dosage: UNK UKN, UNK

REACTIONS (6)
  - Diverticulum [Recovering/Resolving]
  - Constipation [Unknown]
  - Abdominal pain upper [Unknown]
  - Abdominal pain [Unknown]
  - Pain [Recovering/Resolving]
  - Cough [Recovering/Resolving]
